FAERS Safety Report 5492584-X (Version None)
Quarter: 2007Q4

REPORT INFORMATION
  Report Type: 
  Country: None (occurrence: None)
  Receive Date: 20071022
  Receipt Date: 20071012
  Transmission Date: 20080405
  Serious: No
  Sender: FDA-Public Use
  Company Number: US-PFIZER INC-2007069097

PATIENT

DRUGS (1)
  1. LIPITOR [Suspect]

REACTIONS (1)
  - NO ADVERSE REACTION [None]
